FAERS Safety Report 5781102-4 (Version None)
Quarter: 2008Q2

REPORT INFORMATION
  Report Type: 
  Country: None (occurrence: None)
  Receive Date: 20080620
  Receipt Date: 20080609
  Transmission Date: 20081010
  Serious: Yes (Other)
  Sender: FDA-Public Use
  Company Number: US-PFIZER INC-2008049831

PATIENT
  Sex: Male

DRUGS (2)
  1. CHANTIX [Suspect]
  2. SUTENT [Suspect]

REACTIONS (2)
  - DYSPNOEA [None]
  - MUSCLE ATROPHY [None]
